FAERS Safety Report 6318689-9 (Version None)
Quarter: 2009Q3

REPORT INFORMATION
  Report Type: 
  Country: None (occurrence: None)
  Receive Date: 20090821
  Receipt Date: 20090812
  Transmission Date: 20100115
  Serious: Yes (Hospitalization, Other)
  Sender: FDA-Public Use
  Company Number: HQWYE876706OCT05

PATIENT
  Sex: Female

DRUGS (6)
  1. PREMPRO [Suspect]
  2. PROGESTERONE [Suspect]
  3. MEDROXYPROGESTERONE ACETATE [Suspect]
  4. ESTRADIOL [Suspect]
  5. PREMARIN [Suspect]
  6. PROVERA [Suspect]

REACTIONS (1)
  - BREAST CANCER METASTATIC [None]
